FAERS Safety Report 5954442-3 (Version None)
Quarter: 2008Q4

REPORT INFORMATION
  Report Type: 
  Country: None (occurrence: None)
  Receive Date: 20081117
  Receipt Date: 20081104
  Transmission Date: 20090506
  Serious: Yes (Hospitalization, Other)
  Sender: FDA-Public Use
  Company Number: BR-ROCHE-595490

PATIENT
  Age: 46 Year
  Sex: Female

DRUGS (1)
  1. DIAZEPAM [Suspect]
     Indication: GASTRITIS
     Route: 042

REACTIONS (3)
  - AGITATION [None]
  - INSOMNIA [None]
  - PALPITATIONS [None]
